FAERS Safety Report 21843433 (Version 1)
Quarter: 2023Q1

REPORT INFORMATION
  Report Type: Spontaneous
  Country: US (occurrence: US)
  Receive Date: 20230110
  Receipt Date: 20230110
  Transmission Date: 20230417
  Serious: Yes (Death, Life-Threatening, Hospitalization, Other)
  Sender: FDA-Public Use
  Company Number: US-JUBILANT CADISTA PHARMACEUTICALS-2023JUB00007

PATIENT
  Age: 67 Year
  Sex: Male

DRUGS (3)
  1. PREDNISONE [Suspect]
     Active Substance: PREDNISONE
     Indication: Sinusitis bacterial
     Dosage: UNK
     Route: 048
  2. METHYLPREDNISOLONE [Suspect]
     Active Substance: METHYLPREDNISOLONE
     Indication: Vasculitis
     Dosage: ONE-TIME DOSE; 1 TOTAL (1 {TOTAL} CUMULATIVE DOSE)
     Route: 042
  3. LEVOFLOXACIN [Concomitant]
     Active Substance: LEVOFLOXACIN
     Indication: Sinusitis bacterial
     Dosage: UNK

REACTIONS (5)
  - Hyperglycaemia [Unknown]
  - Disseminated mucormycosis [Fatal]
  - Acute kidney injury [Fatal]
  - Encephalopathy [Fatal]
  - Haemodynamic instability [Fatal]
